FAERS Safety Report 5859216-X (Version None)
Quarter: 2008Q3

REPORT INFORMATION
  Report Type: 
  Country: None (occurrence: None)
  Receive Date: 20080826
  Receipt Date: 20080826
  Transmission Date: 20090109
  Serious: No
  Sender: FDA-Public Use
  Company Number: None

PATIENT
  Age: 7 Year
  Sex: Male
  Weight: 22.5665 kg

DRUGS (1)
  1. FOCALIN XR [Suspect]
     Dosage: 20MG TWICE PO QAM PO
     Route: 048
     Dates: start: 20080711, end: 20080807

REACTIONS (2)
  - MUSCLE TWITCHING [None]
  - TOURETTE'S DISORDER [None]
